FAERS Safety Report 8808172 (Version 1)
Quarter: 2012Q4

REPORT INFORMATION
  Report Type: 
  Country: US (occurrence: US)
  Receive Date: 20120925
  Receipt Date: 20120925
  Transmission Date: 20130627
  Serious: Yes (Other)
  Sender: FDA-Public Use
  Company Number: US-ACTELION-A-US2012-71614

PATIENT
  Age: 46 Year
  Sex: Male

DRUGS (1)
  1. ZAVESCA [Suspect]
     Indication: GAUCHER^S DISEASE
     Dosage: UNK
     Route: 048
     Dates: end: 201207

REACTIONS (3)
  - Terminal state [Unknown]
  - Mental impairment [Unknown]
  - Parkinson^s disease [Unknown]
